FAERS Safety Report 20468534 (Version 4)
Quarter: 2023Q2

REPORT INFORMATION
  Report Type: Spontaneous
  Country: US (occurrence: US)
  Receive Date: 20220214
  Receipt Date: 20230627
  Transmission Date: 20230722
  Serious: Yes (Hospitalization, Other)
  Sender: FDA-Public Use
  Company Number: US-GILEAD-2022-0569268

PATIENT
  Age: 49 Year
  Sex: Male
  Weight: 143.76 kg

DRUGS (52)
  1. ATRIPLA [Suspect]
     Active Substance: EFAVIRENZ\EMTRICITABINE\TENOFOVIR DISOPROXIL FUMARATE
     Indication: HIV infection
     Dosage: UNK
     Route: 048
     Dates: start: 2007, end: 201701
  2. ATRIPLA [Suspect]
     Active Substance: EFAVIRENZ\EMTRICITABINE\TENOFOVIR DISOPROXIL FUMARATE
     Dosage: UNK
     Route: 048
     Dates: start: 2006, end: 201701
  3. ATRIPLA [Suspect]
     Active Substance: EFAVIRENZ\EMTRICITABINE\TENOFOVIR DISOPROXIL FUMARATE
     Dosage: UNK
     Route: 048
     Dates: start: 2006, end: 201711
  4. TRIUMEQ [Concomitant]
     Active Substance: ABACAVIR SULFATE\DOLUTEGRAVIR SODIUM\LAMIVUDINE
  5. .ALPHA.-TOCOPHEROL [Concomitant]
     Active Substance: .ALPHA.-TOCOPHEROL
  6. ATORVASTATIN [Concomitant]
     Active Substance: ATORVASTATIN
  7. CHANTIX [Concomitant]
     Active Substance: VARENICLINE TARTRATE
  8. VITAMIN D NOS [Concomitant]
     Active Substance: VITAMIN D NOS
  9. AMLODIPINE [Concomitant]
     Active Substance: AMLODIPINE BESYLATE
  10. PRAVASTATIN [Concomitant]
     Active Substance: PRAVASTATIN
  11. METOPROLOL [Concomitant]
     Active Substance: METOPROLOL
  12. FLUTICASONE [Concomitant]
     Active Substance: FLUTICASONE
  13. CICLOPIROX [Concomitant]
     Active Substance: CICLOPIROX
  14. QUINAPRIL [Concomitant]
     Active Substance: QUINAPRIL
  15. DOXYCYCLINE [Concomitant]
     Active Substance: DOXYCYCLINE
  16. FENOFIBRATE [Concomitant]
     Active Substance: FENOFIBRATE
  17. ALLOPURINOL [Concomitant]
     Active Substance: ALLOPURINOL
  18. TERBINAFINE [Concomitant]
     Active Substance: TERBINAFINE
  19. ASPIRIN [Concomitant]
     Active Substance: ASPIRIN
  20. NYSTOP [Concomitant]
     Active Substance: NYSTATIN
  21. ASPIRIN [Concomitant]
     Active Substance: ASPIRIN
  22. FLUCONAZOLE [Concomitant]
     Active Substance: FLUCONAZOLE
  23. ESCITALOPRAM [Concomitant]
     Active Substance: ESCITALOPRAM OXALATE
  24. DIPHENHYDRAMINE [Concomitant]
     Active Substance: DIPHENHYDRAMINE
  25. CLONAZEPAM [Concomitant]
     Active Substance: CLONAZEPAM
  26. CLONIDINE [Concomitant]
     Active Substance: CLONIDINE
  27. INDOMETHACIN [Concomitant]
     Active Substance: INDOMETHACIN
  28. CITALOPRAM [Concomitant]
     Active Substance: CITALOPRAM HYDROBROMIDE
  29. NITROSTAT [Concomitant]
     Active Substance: NITROGLYCERIN
  30. KETOCONAZOLE [Concomitant]
     Active Substance: KETOCONAZOLE
  31. AMMONIUM CHLORIDE\DEXTROMETHORPHAN\SODIUM CITRATE [Concomitant]
     Active Substance: AMMONIUM CHLORIDE\DEXTROMETHORPHAN\SODIUM CITRATE
  32. MUPIROCIN [Concomitant]
     Active Substance: MUPIROCIN
  33. GABAPENTIN [Concomitant]
     Active Substance: GABAPENTIN
  34. CODEINE [Concomitant]
     Active Substance: CODEINE
  35. NORTRIPTYLINE [Concomitant]
     Active Substance: NORTRIPTYLINE
  36. ACLIDINIUM BROMIDE [Concomitant]
     Active Substance: ACLIDINIUM BROMIDE
  37. METFORMIN HYDROCHLORIDE [Concomitant]
     Active Substance: METFORMIN HYDROCHLORIDE
  38. TRAMADOL [Concomitant]
     Active Substance: TRAMADOL
  39. AZITHROMYCIN [Concomitant]
     Active Substance: AZITHROMYCIN
  40. LEVEMIR [Concomitant]
     Active Substance: INSULIN DETEMIR
  41. TESTOSTERONE [Concomitant]
     Active Substance: TESTOSTERONE
  42. REQUIP [Concomitant]
     Active Substance: ROPINIROLE HYDROCHLORIDE
  43. HUMALOG [Concomitant]
     Active Substance: INSULIN LISPRO
  44. CREON [Concomitant]
     Active Substance: PANCRELIPASE AMYLASE\PANCRELIPASE LIPASE\PANCRELIPASE PROTEASE
  45. AMBIEN [Concomitant]
     Active Substance: ZOLPIDEM TARTRATE
  46. XTAMPZA ER [Concomitant]
     Active Substance: OXYCODONE
  47. TRESIBA [Concomitant]
     Active Substance: INSULIN DEGLUDEC
  48. OZEMPIC [Concomitant]
     Active Substance: SEMAGLUTIDE
  49. ELIQUIS [Concomitant]
     Active Substance: APIXABAN
  50. CARBAMAZEPINE [Concomitant]
     Active Substance: CARBAMAZEPINE
  51. TOPAMAX [Concomitant]
     Active Substance: TOPIRAMATE
  52. FUROSEMIDE [Concomitant]
     Active Substance: FUROSEMIDE

REACTIONS (13)
  - Chronic kidney disease [Not Recovered/Not Resolved]
  - Renal injury [Unknown]
  - Renal failure [Recovered/Resolved]
  - Emotional distress [Not Recovered/Not Resolved]
  - Anhedonia [Not Recovered/Not Resolved]
  - Anxiety [Not Recovered/Not Resolved]
  - Pain [Not Recovered/Not Resolved]
  - Flank pain [Not Recovered/Not Resolved]
  - Back pain [Not Recovered/Not Resolved]
  - Muscular weakness [Not Recovered/Not Resolved]
  - Quality of life decreased [Not Recovered/Not Resolved]
  - Pollakiuria [Not Recovered/Not Resolved]
  - Gait disturbance [Not Recovered/Not Resolved]

NARRATIVE: CASE EVENT DATE: 20140101
